FAERS Safety Report 7227902-5 (Version None)
Quarter: 2011Q1

REPORT INFORMATION
  Report Type: 
  Country: None (occurrence: None)
  Receive Date: 20110114
  Receipt Date: 20110110
  Transmission Date: 20110831
  Serious: Yes (Hospitalization)
  Sender: FDA-Public Use
  Company Number: US-MERCK-1101USA00816

PATIENT
  Age: 73 Year
  Sex: Male

DRUGS (2)
  1. ZOCOR [Suspect]
     Indication: BLOOD CHOLESTEROL
     Route: 048
     Dates: start: 20080101, end: 20101012
  2. METFORMIN [Concomitant]
     Route: 065

REACTIONS (3)
  - DIPLEGIA [None]
  - PAIN IN EXTREMITY [None]
  - RENAL FAILURE [None]
